FAERS Safety Report 23799068 (Version 2)
Quarter: 2024Q2

REPORT INFORMATION
  Report Type: Report from Study
  Country: DE (occurrence: DE)
  Receive Date: 20240430
  Receipt Date: 20240620
  Transmission Date: 20240716
  Serious: No
  Sender: FDA-Public Use
  Company Number: DE-ROCHE-3552987

PATIENT
  Age: 33 Year
  Sex: Female
  Weight: 76.0 kg

DRUGS (15)
  1. OCRELIZUMAB [Suspect]
     Active Substance: OCRELIZUMAB
     Indication: Relapsing-remitting multiple sclerosis
     Route: 065
     Dates: start: 20220909, end: 20220909
  2. OCRELIZUMAB [Suspect]
     Active Substance: OCRELIZUMAB
     Route: 065
     Dates: start: 20230929, end: 20230929
  3. ACETAMINOPHEN [Concomitant]
     Active Substance: ACETAMINOPHEN
     Indication: Prophylaxis
     Dates: start: 20220909, end: 20220909
  4. DIMETHINDENE [Concomitant]
     Active Substance: DIMETHINDENE
     Indication: Prophylaxis
     Dates: start: 20220909, end: 20220909
  5. TOPIRAMATE [Concomitant]
     Active Substance: TOPIRAMATE
     Dates: start: 2017, end: 20221124
  6. GABAPENTIN [Concomitant]
     Active Substance: GABAPENTIN
     Dates: start: 2014, end: 20221124
  7. GABAPENTIN [Concomitant]
     Active Substance: GABAPENTIN
     Dates: start: 20230731
  8. TIZANIDINE HYDROCHLORIDE [Concomitant]
     Active Substance: TIZANIDINE HYDROCHLORIDE
     Dates: start: 2020, end: 20221124
  9. DALFAMPRIDINE [Concomitant]
     Active Substance: DALFAMPRIDINE
     Dates: start: 20210827, end: 20221001
  10. MIRABEGRON [Concomitant]
     Active Substance: MIRABEGRON
     Dates: start: 202203, end: 20221124
  11. DULOXETINE [Concomitant]
     Active Substance: DULOXETINE
     Dates: start: 2014, end: 20221124
  12. DULOXETINE [Concomitant]
     Active Substance: DULOXETINE
     Dates: start: 20230731
  13. INSULIN NOS [Concomitant]
     Active Substance: INSULIN NOS
     Dates: start: 20230510, end: 20230719
  14. INSULIN NOS [Concomitant]
     Active Substance: INSULIN NOS
     Dates: start: 20230615, end: 20230719
  15. ENOXAPARIN SODIUM [Concomitant]
     Active Substance: ENOXAPARIN SODIUM
     Dates: start: 20230727, end: 20230806

REACTIONS (1)
  - COVID-19 [Recovered/Resolved]

NARRATIVE: CASE EVENT DATE: 20231002
